FAERS Safety Report 4498923-0 (Version None)
Quarter: 2004Q4

REPORT INFORMATION
  Report Type: 
  Country: None (occurrence: None)
  Receive Date: 20041108
  Receipt Date: 20041027
  Transmission Date: 20050328
  Serious: Yes (Hospitalization)
  Sender: FDA-Public Use
  Company Number: 2004-BP-10837BR

PATIENT
  Age: 65 Year
  Sex: Male

DRUGS (3)
  1. COMBIVENT [Suspect]
     Indication: ASTHMA
     Dosage: 160/960 MCG (SEE TEXT, 2 PUFFS QID), IH
     Dates: start: 20010101, end: 20041025
  2. METFORMIN (TA) [Concomitant]
  3. SINVASTATIN (TA) [Concomitant]

REACTIONS (3)
  - DRUG INEFFECTIVE [None]
  - LOSS OF CONSCIOUSNESS [None]
  - RESPIRATORY DISTRESS [None]
